FAERS Safety Report 26007042 (Version 5)
Quarter: 2025Q4

REPORT INFORMATION
  Report Type: Spontaneous
  Country: JP (occurrence: JP)
  Receive Date: 20251106
  Receipt Date: 20251205
  Transmission Date: 20260117
  Serious: Yes (Disabling, Other)
  Sender: PFIZER
  Company Number: JP-GENMAB-2025-03273

PATIENT
  Age: 53 Year
  Sex: Female
  Weight: 76 kg

DRUGS (1)
  1. TIVDAK [Suspect]
     Active Substance: TISOTUMAB VEDOTIN-TFTV
     Indication: Cervix cancer metastatic
     Dosage: 2 MILLIGRAM/KILOGRAM, 1Q3W
     Route: 042
     Dates: start: 20250715, end: 20250918

REACTIONS (7)
  - Infective keratitis [Recovered/Resolved with Sequelae]
  - Corneal perforation [Recovered/Resolved with Sequelae]
  - Ulcerative keratitis [Recovered/Resolved with Sequelae]
  - Ulcerative keratitis [Not Recovered/Not Resolved]
  - Cervix cancer metastatic [Unknown]
  - Malignant neoplasm progression [Unknown]
  - Dry eye [Unknown]

NARRATIVE: CASE EVENT DATE: 20251002
